FAERS Safety Report 13752444 (Version 2)
Quarter: 2017Q3

REPORT INFORMATION
  Report Type: Spontaneous
  Country: RU (occurrence: RU)
  Receive Date: 20170713
  Receipt Date: 20170713
  Transmission Date: 20171127
  Serious: Yes (Other)
  Sender: FDA-Public Use
  Company Number: RU-ASTRAZENECA-2017SE71682

PATIENT
  Age: 69 Year
  Sex: Male

DRUGS (3)
  1. ATORIS [Concomitant]
     Active Substance: ATORVASTATIN CALCIUM
     Dates: start: 20170117
  2. BRILINTA [Suspect]
     Active Substance: TICAGRELOR
     Indication: MYOCARDIAL INFARCTION
     Route: 048
     Dates: start: 20170130, end: 20170518
  3. CARDIOMAGNYL [Concomitant]
     Active Substance: ASPIRIN\MAGNESIUM HYDROXIDE
     Dates: start: 20170117

REACTIONS (1)
  - Shunt thrombosis [Recovered/Resolved]
